FAERS Safety Report 8760204 (Version 3)
Quarter: 2013Q4

REPORT INFORMATION
  Report Type: Report from Study
  Country: US (occurrence: US)
  Receive Date: 20120829
  Receipt Date: 20131031
  Transmission Date: 20140711
  Serious: No
  Sender: FDA-Public Use
  Company Number: US-009507513-2012SP026612

PATIENT
  Sex: Female

DRUGS (12)
  1. VICTRELIS [Suspect]
     Indication: CHRONIC HEPATITIS C
     Dosage: UNK
     Route: 048
     Dates: start: 20120101
  2. RIBAVIRIN (WARRICK) [Suspect]
     Dosage: 400 MG, BID
     Dates: start: 20111127
  3. RIBAVIRIN (WARRICK) [Suspect]
     Dosage: 200 MG, QD
  4. RIBAVIRIN (WARRICK) [Suspect]
     Dosage: 800 MG, QD
     Dates: start: 20111127
  5. PEGINTERFERON ALFA-2A [Suspect]
     Dosage: 180 ?G, QW
     Dates: start: 20111127, end: 20120506
  6. IRON (UNSPECIFIED) [Concomitant]
     Dosage: UNK
  7. LOMOTIL [Concomitant]
  8. XALATAN [Concomitant]
  9. METOPROLOL [Concomitant]
  10. DIOVAN [Concomitant]
  11. SYNTHROID [Concomitant]
  12. JANUMET [Concomitant]

REACTIONS (14)
  - Sensation of heaviness [Unknown]
  - Dysgeusia [Unknown]
  - Alopecia [Unknown]
  - Incontinence [Unknown]
  - Diarrhoea [Unknown]
  - Red blood cell count decreased [Unknown]
  - Weight decreased [Unknown]
  - Insomnia [Unknown]
  - Fatigue [Unknown]
  - Anaemia [Unknown]
  - Nausea [Unknown]
  - Vomiting [Unknown]
  - Skin exfoliation [Unknown]
  - Pruritus [Unknown]
